FAERS Safety Report 9868728 (Version 1)
Quarter: 2014Q1

REPORT INFORMATION
  Report Type: Spontaneous
  Country: US (occurrence: US)
  Receive Date: 20140204
  Receipt Date: 20140204
  Transmission Date: 20141002
  Serious: No
  Sender: FDA-Public Use
  Company Number: US-B.I. PHARMACEUTICALS,INC./RIDGEFIELD-2014-BI-03044BP

PATIENT
  Age: 83 Year
  Sex: Male
  Weight: 90 kg

DRUGS (9)
  1. PRADAXA [Suspect]
     Indication: CEREBROVASCULAR ACCIDENT PROPHYLAXIS
     Dosage: 300 MG
     Route: 048
     Dates: start: 201309
  2. PRADAXA [Suspect]
     Indication: ATRIAL FIBRILLATION
  3. METOPROLOL [Concomitant]
     Dosage: 100 MG
     Route: 048
  4. FISH OIL [Concomitant]
     Route: 048
  5. VITAMIN B12 [Concomitant]
     Dosage: 1000 MG
     Route: 048
  6. VITAMIN D [Concomitant]
     Dosage: 2000 MG
     Route: 048
  7. POTASSIUM CITRATE ER [Concomitant]
     Dosage: 10 MEQ
     Route: 048
  8. DILTIAZEM ER [Concomitant]
     Dosage: 240 MG
     Route: 048
  9. LISINOPRIL [Concomitant]
     Dosage: 5 MG
     Route: 048

REACTIONS (1)
  - Gingival disorder [Not Recovered/Not Resolved]
